FAERS Safety Report 18526308 (Version 1)
Quarter: 2020Q4

REPORT INFORMATION
  Report Type: Spontaneous
  Country: US (occurrence: US)
  Receive Date: 20201120
  Receipt Date: 20201120
  Transmission Date: 20210114
  Serious: No
  Sender: FDA-Public Use
  Company Number: US-SA-2020SA330387

PATIENT

DRUGS (1)
  1. DUPIXENT [Suspect]
     Active Substance: DUPILUMAB
     Indication: EOSINOPHILIA
     Dosage: 300 MG, QOW
     Route: 058

REACTIONS (4)
  - Conjunctivitis [Unknown]
  - Drug intolerance [Unknown]
  - Eyelid ptosis [Unknown]
  - Product use in unapproved indication [Unknown]
